FAERS Safety Report 23517301 (Version 1)
Quarter: 2024Q1

REPORT INFORMATION
  Report Type: Spontaneous
  Country: IT (occurrence: IT)
  Receive Date: 20240213
  Receipt Date: 20240213
  Transmission Date: 20240409
  Serious: Yes (Hospitalization)
  Sender: FDA-Public Use
  Company Number: None

PATIENT
  Age: 32 Year
  Sex: Male

DRUGS (2)
  1. CARDURA [Suspect]
     Active Substance: DOXAZOSIN MESYLATE
     Indication: Hypertension
     Dosage: 1 DOSAGE FORM
     Route: 048
  2. AMLODIPINE BESYLATE\OLMESARTAN MEDOXOMIL [Suspect]
     Active Substance: AMLODIPINE BESYLATE\OLMESARTAN MEDOXOMIL
     Indication: Hypertension
     Dosage: 1 DOSAGE FORM
     Route: 048

REACTIONS (2)
  - Blood pressure increased [Recovered/Resolved]
  - Therapy non-responder [Recovering/Resolving]

NARRATIVE: CASE EVENT DATE: 20240123
